FAERS Safety Report 17443912 (Version 2)
Quarter: 2020Q2

REPORT INFORMATION
  Report Type: Report from Study
  Country: None (occurrence: CA)
  Receive Date: 20200221
  Receipt Date: 20200415
  Transmission Date: 20200713
  Serious: Yes (Other)
  Sender: FDA-Public Use
  Company Number: CA-ABBVIE-20K-028-3286999-00

PATIENT
  Age: 64 Year
  Sex: Male

DRUGS (1)
  1. LUPRON DEPOT [Suspect]
     Active Substance: LEUPROLIDE ACETATE
     Indication: PROSTATE CANCER
     Route: 030
     Dates: start: 20190525

REACTIONS (16)
  - Aortic arteriosclerosis [Unknown]
  - Red blood cell count decreased [Unknown]
  - Renal cyst [Unknown]
  - Hiatus hernia [Unknown]
  - Pulmonary granuloma [Unknown]
  - Metastases to bone [Not Recovered/Not Resolved]
  - Nephrolithiasis [Unknown]
  - Hepatic steatosis [Unknown]
  - Thyroid mass [Unknown]
  - Blood alkaline phosphatase increased [Unknown]
  - Osteosclerosis [Unknown]
  - Pulmonary fibrosis [Unknown]
  - Blood testosterone decreased [Unknown]
  - Haematocrit decreased [Unknown]
  - Haemoglobin decreased [Unknown]
  - Prostatic specific antigen increased [Unknown]

NARRATIVE: CASE EVENT DATE: 201912
